FAERS Safety Report 6775013-5 (Version None)
Quarter: 2010Q2

REPORT INFORMATION
  Report Type: 
  Country: None (occurrence: None)
  Receive Date: 20100617
  Receipt Date: 20100610
  Transmission Date: 20101027
  Serious: Yes (Hospitalization, Other)
  Sender: FDA-Public Use
  Company Number: A0865342A

PATIENT
  Sex: Female
  Weight: 92 kg

DRUGS (2)
  1. SERETIDE [Suspect]
     Indication: ASTHMA
     Dosage: 2PUFF TWICE PER DAY
     Route: 055
     Dates: start: 20090901, end: 20090901
  2. SALBUTAMOL [Concomitant]
     Dosage: 25ML PER DAY
     Dates: start: 20090901

REACTIONS (2)
  - JOINT DISLOCATION [None]
  - SURGERY [None]
